FAERS Safety Report 6240806-X (Version None)
Quarter: 2009Q2

REPORT INFORMATION
  Report Type: 
  Country: None (occurrence: None)
  Receive Date: 20090623
  Receipt Date: 20090615
  Transmission Date: 20091009
  Serious: Yes (Hospitalization, Other)
  Sender: FDA-Public Use
  Company Number: BR-ELI_LILLY_AND_COMPANY-BR200906003581

PATIENT
  Sex: Female

DRUGS (2)
  1. FORTEO [Suspect]
     Indication: OSTEOPOROSIS
     Dosage: 20 UG, DAILY (1/D)
     Route: 058
     Dates: start: 20081101, end: 20090401
  2. SIMVASTATIN [Concomitant]
     Dosage: UNK, UNKNOWN
     Route: 065

REACTIONS (9)
  - ANOREXIA [None]
  - CRYING [None]
  - DEPRESSION [None]
  - FEAR [None]
  - IMPATIENCE [None]
  - INFLUENZA [None]
  - MALAISE [None]
  - STRESS [None]
  - WEIGHT DECREASED [None]
